FAERS Safety Report 7314034-0 (Version None)
Quarter: 2011Q1

REPORT INFORMATION
  Report Type: 
  Country: None (occurrence: None)
  Receive Date: 20110218
  Receipt Date: 20110218
  Transmission Date: 20110831
  Serious: Yes (Hospitalization)
  Sender: FDA-Public Use
  Company Number: None

PATIENT
  Age: 67 Year
  Sex: Male
  Weight: 72.57 kg

DRUGS (1)
  1. NEOMYCIN AND POLYMYXIN B SULFATE [Suspect]
     Indication: INFECTION PROPHYLAXIS
     Dosage: QS TOP
     Route: 061
     Dates: start: 20101112, end: 20101203

REACTIONS (3)
  - DERMATITIS CONTACT [None]
  - CELLULITIS [None]
  - IMPETIGO [None]
